FAERS Safety Report 4862280-8 (Version None)
Quarter: 2005Q4

REPORT INFORMATION
  Report Type: 
  Country: None (occurrence: None)
  Receive Date: 20051201
  Receipt Date: 20050713
  Transmission Date: 20060501
  Serious: No
  Sender: FDA-Public Use
  Company Number: 2005PV000421

PATIENT
  Age: 62 Year
  Sex: Male
  Weight: 113.3993 kg

DRUGS (12)
  1. BYETTA [Suspect]
     Indication: DIABETES MELLITUS NON-INSULIN-DEPENDENT
     Dosage: 5 MCG;BID;SC
     Route: 058
     Dates: start: 20050711
  2. AMARYL [Concomitant]
  3. METFORMIN HCL [Concomitant]
  4. PLAVIX [Concomitant]
  5. WARFARIN [Concomitant]
  6. ASPIRIN [Concomitant]
  7. LIPITOR [Concomitant]
  8. TOPROL-XL [Concomitant]
  9. ACE INHIBITOR NOS [Concomitant]
  10. COENZYME Q10 [Concomitant]
  11. MULTIVITAMIN [Concomitant]
  12. NPH INSULIN [Concomitant]

REACTIONS (2)
  - BLOOD GLUCOSE INCREASED [None]
  - FEELING ABNORMAL [None]
